FAERS Safety Report 4434127-5 (Version None)
Quarter: 2004Q3

REPORT INFORMATION
  Report Type: 
  Country: None (occurrence: None)
  Receive Date: 20040825
  Receipt Date: 20040812
  Transmission Date: 20050211
  Serious: Yes (Other)
  Sender: FDA-Public Use
  Company Number: 2004058167

PATIENT
  Age: 30 Year
  Sex: Male

DRUGS (4)
  1. PETINUTIN (METHSUXIMIDE) [Suspect]
     Indication: ILL-DEFINED DISORDER
     Dosage: 1800 MG (3 IN 1 D), ORAL
     Route: 048
     Dates: start: 20040514
  2. LAMOTRIGINE [Concomitant]
  3. ERGENYL CHRONO (VALPROATE SODIUM, VALPROIC ACID) [Concomitant]
  4. LORAZEPAM [Concomitant]

REACTIONS (2)
  - CONVULSION [None]
  - PHARMACEUTICAL PRODUCT COMPLAINT [None]
